FAERS Safety Report 5136220-0 (Version None)
Quarter: 2006Q4

REPORT INFORMATION
  Report Type: 
  Country: None (occurrence: None)
  Receive Date: 20061027
  Receipt Date: 20061016
  Transmission Date: 20070319
  Serious: Yes (Other)
  Sender: FDA-Public Use
  Company Number: CA-JNJFOC-20060604221

PATIENT
  Sex: Female
  Weight: 7 kg

DRUGS (1)
  1. MICRONOR [Suspect]
     Indication: DRUG EXPOSURE VIA BREAST MILK

REACTIONS (2)
  - DRUG EXPOSURE VIA BREAST MILK [None]
  - FAILURE TO THRIVE [None]
